FAERS Safety Report 6055492-1 (Version None)
Quarter: 2009Q1

REPORT INFORMATION
  Report Type: 
  Country: None (occurrence: None)
  Receive Date: 20090128
  Receipt Date: 20090121
  Transmission Date: 20090719
  Serious: Yes (Hospitalization)
  Sender: FDA-Public Use
  Company Number: A0718979A

PATIENT
  Age: 61 Year
  Sex: Male
  Weight: 95 kg

DRUGS (6)
  1. AVANDIA [Suspect]
     Dates: start: 20010501, end: 20070501
  2. AVANDAMET [Suspect]
     Dates: start: 20010501, end: 20070501
  3. AVANDARYL [Suspect]
     Dates: start: 20010501, end: 20070501
  4. METFORMIN HCL [Concomitant]
     Dates: start: 19960301, end: 20051001
  5. DIABETA [Concomitant]
     Dates: start: 20070103, end: 20070701
  6. GLUCOTROL [Concomitant]
     Dates: start: 20030601, end: 20061201

REACTIONS (4)
  - ACTIVITIES OF DAILY LIVING IMPAIRED [None]
  - ANGINA UNSTABLE [None]
  - CARDIAC DISORDER [None]
  - MYOCARDIAL INFARCTION [None]
